FAERS Safety Report 7848808 (Version 5)
Quarter: 2013Q4

REPORT INFORMATION
  Report Type: Spontaneous
  Country: US (occurrence: US)
  Receive Date: 20110309
  Receipt Date: 20131031
  Transmission Date: 20140711
  Serious: Yes (Life-Threatening, Hospitalization, Other)
  Sender: FDA-Public Use
  Company Number: US-009507513-1012USA03568

PATIENT
  Age: 68 Year
  Sex: Male
  Weight: 93.89 kg

DRUGS (15)
  1. JANUMET [Suspect]
     Indication: TYPE 2 DIABETES MELLITUS
     Dosage: 50/1000
     Route: 048
     Dates: start: 200906, end: 20101207
  2. JANUMET [Suspect]
     Dosage: 100/2000
     Route: 048
  3. ASPIRIN [Concomitant]
     Indication: PROPHYLAXIS
     Dosage: 81 MG, UNK
     Route: 048
  4. CRESTOR [Concomitant]
     Indication: DYSLIPIDAEMIA
     Dosage: 10 MG, QD
     Route: 048
  5. CRESTOR [Concomitant]
     Indication: CORONARY ARTERY DISEASE
  6. OMEGA-3 MARINE TRIGLYCERIDES [Concomitant]
     Indication: DYSLIPIDAEMIA
     Dosage: UNK G, UNK
     Route: 048
  7. FLOMAX (TAMSULOSIN HYDROCHLORIDE) [Concomitant]
     Indication: BENIGN PROSTATIC HYPERPLASIA
     Dosage: 0.4 MG, QD
  8. PRINIVIL [Suspect]
     Indication: HYPERTENSION
     Dosage: 40 MG, UNK
     Route: 048
     Dates: end: 20101207
  9. NEXIUM [Concomitant]
     Indication: GASTROOESOPHAGEAL REFLUX DISEASE
     Dosage: 40 MG, UNK
     Route: 048
  10. NIASPAN ER [Concomitant]
     Dosage: 750 MG, HS
     Route: 048
     Dates: end: 201012
  11. NORVASC [Concomitant]
     Indication: HYPERTENSION
     Dosage: 2.5 MG, TID
     Route: 048
     Dates: end: 201012
  12. ZETIA [Concomitant]
     Indication: BLOOD CHOLESTEROL INCREASED
     Dosage: 10 MG, QD
     Route: 048
     Dates: end: 201012
  13. JANUVIA [Suspect]
     Indication: TYPE 2 DIABETES MELLITUS
     Route: 048
     Dates: start: 20090209, end: 200906
  14. GLUCOPHAGE [Suspect]
     Dosage: 1000 MG, BID
  15. KRILL OIL [Concomitant]
     Dosage: UNK, QD

REACTIONS (17)
  - Hyperglycaemia [Unknown]
  - Pancreatitis [Recovering/Resolving]
  - Pancreatitis necrotising [Recovering/Resolving]
  - Ileus [Recovering/Resolving]
  - Adrenal mass [Unknown]
  - Thrombocytosis [Unknown]
  - Haemoglobin decreased [Unknown]
  - Pancreatic carcinoma [Unknown]
  - Cholecystectomy [Unknown]
  - Cholecystitis chronic [Unknown]
  - Malignant neoplasm of ampulla of Vater [Unknown]
  - Retroperitoneal fibrosis [Unknown]
  - Intraductal papillary mucinous neoplasm [Unknown]
  - Surgery [Unknown]
  - Pancreaticoduodenectomy [Unknown]
  - Gastrointestinal tube insertion [Unknown]
  - Gastrointestinal tube insertion [Unknown]
